FAERS Safety Report 24005738 (Version 1)
Quarter: 2024Q2

REPORT INFORMATION
  Report Type: Report from Study
  Country: IN (occurrence: IN)
  Receive Date: 20240624
  Receipt Date: 20240624
  Transmission Date: 20240717
  Serious: Yes (Death, Other)
  Sender: FDA-Public Use
  Company Number: IN-002147023-NVSC2020IN216454

PATIENT

DRUGS (6)
  1. RUXOLITINIB [Suspect]
     Active Substance: RUXOLITINIB
     Indication: Myelofibrosis
     Dosage: 20 MG, BID
     Route: 048
     Dates: start: 20200218
  2. RUXOLITINIB [Suspect]
     Active Substance: RUXOLITINIB
     Indication: Polycythaemia vera
     Dosage: 20 MG, QOD (EVERY ALTERNATE DAY)
     Route: 065
  3. RUXOLITINIB [Suspect]
     Active Substance: RUXOLITINIB
     Dosage: 10 MG, BID (TWICE A DAY)
     Route: 048
  4. RUXOLITINIB [Suspect]
     Active Substance: RUXOLITINIB
     Dosage: 20 MG(5MG-0-15MG (MORNING-0-NIGHT)
     Route: 065
  5. RUXOLITINIB [Suspect]
     Active Substance: RUXOLITINIB
     Dosage: UNK
     Route: 048
  6. HYDROXYUREA [Concomitant]
     Active Substance: HYDROXYUREA
     Indication: Product used for unknown indication
     Dosage: 500 MG
     Route: 065

REACTIONS (14)
  - Red blood cell abnormality [Unknown]
  - Basophilia [Unknown]
  - Blood disorder [Unknown]
  - Cerebral disorder [Unknown]
  - Cytopenia [Unknown]
  - Platelet count decreased [Unknown]
  - Eosinophilia [Unknown]
  - Weight increased [Unknown]
  - Anxiety [Unknown]
  - Aphonia [Unknown]
  - Progressive multifocal leukoencephalopathy [Fatal]
  - Splenomegaly [Unknown]
  - Haemangioma of liver [Unknown]
  - White blood cell count increased [Unknown]
